FAERS Safety Report 15077235 (Version 1)
Quarter: 2018Q2

REPORT INFORMATION
  Report Type: Report from Study
  Country: None (occurrence: US)
  Receive Date: 20180627
  Receipt Date: 20180627
  Transmission Date: 20180711
  Serious: Yes (Other)
  Sender: FDA-Public Use
  Company Number: US-ABBVIE-18K-163-2401075-00

PATIENT
  Sex: Female

DRUGS (1)
  1. HUMIRA [Suspect]
     Active Substance: ADALIMUMAB
     Indication: HIDRADENITIS
     Route: 058
     Dates: end: 201802

REACTIONS (4)
  - Arthritis [Recovering/Resolving]
  - Developmental hip dysplasia [Recovering/Resolving]
  - Surgical failure [Recovering/Resolving]
  - Gait disturbance [Recovering/Resolving]
